FAERS Safety Report 7775380-X (Version None)
Quarter: 2011Q3

REPORT INFORMATION
  Report Type: 
  Country: None (occurrence: None)
  Receive Date: 20110923
  Receipt Date: 20110915
  Transmission Date: 20111222
  Serious: Yes (Other)
  Sender: FDA-Public Use
  Company Number: PHHY2010CA78465

PATIENT
  Sex: Female

DRUGS (1)
  1. ZOLEDRONOC ACID [Suspect]
     Indication: OSTEOPOROSIS
     Dosage: 5 MG, UNK
     Route: 042
     Dates: start: 20101116

REACTIONS (7)
  - ABDOMINAL PAIN [None]
  - PAIN IN JAW [None]
  - HYPERSENSITIVITY [None]
  - CHEST PAIN [None]
  - PAIN [None]
  - DYSPNOEA [None]
  - PARAESTHESIA [None]
